FAERS Safety Report 17549861 (Version 1)
Quarter: 2020Q1

REPORT INFORMATION
  Report Type: Spontaneous
  Country: US (occurrence: US)
  Receive Date: 20200317
  Receipt Date: 20200317
  Transmission Date: 20200409
  Serious: Yes (Other)
  Sender: FDA-Public Use
  Company Number: US-ASTRAZENECA-2020SE36540

PATIENT
  Age: 785 Month
  Sex: Female
  Weight: 84.4 kg

DRUGS (1)
  1. BYDUREON BCISE [Suspect]
     Active Substance: EXENATIDE
     Indication: TYPE 2 DIABETES MELLITUS
     Route: 058

REACTIONS (5)
  - Nodule [Unknown]
  - Polyp [Unknown]
  - Device issue [Unknown]
  - Wrong technique in product usage process [Unknown]
  - Pelvic mass [Not Recovered/Not Resolved]

NARRATIVE: CASE EVENT DATE: 201910
